FAERS Safety Report 25810298 (Version 2)
Quarter: 2025Q3

REPORT INFORMATION
  Report Type: Spontaneous
  Country: GB (occurrence: GB)
  Receive Date: 20250917
  Receipt Date: 20250925
  Transmission Date: 20251021
  Serious: Yes (Other)
  Sender: ROCHE
  Company Number: GB-ROCHE-10000386885

PATIENT
  Sex: Female

DRUGS (1)
  1. HERCEPTIN [Suspect]
     Active Substance: TRASTUZUMAB
     Indication: Breast cancer
     Route: 058

REACTIONS (4)
  - Memory impairment [Not Recovered/Not Resolved]
  - Mobility decreased [Recovering/Resolving]
  - CSF test abnormal [Not Recovered/Not Resolved]
  - Neck injury [Not Recovered/Not Resolved]
